FAERS Safety Report 6284770-6 (Version None)
Quarter: 2009Q3

REPORT INFORMATION
  Report Type: 
  Country: None (occurrence: None)
  Receive Date: 20090727
  Receipt Date: 20090720
  Transmission Date: 20100115
  Serious: Yes (Hospitalization)
  Sender: FDA-Public Use
  Company Number: PHHO2009DE07838

PATIENT
  Sex: Female
  Weight: 67 kg

DRUGS (6)
  1. RAD 666 RAD+TAB [Suspect]
     Indication: LIVER TRANSPLANT
     Dosage: OPEN-LABEL
     Route: 048
     Dates: start: 20090403, end: 20090625
  2. RAD 666 RAD+TAB [Suspect]
     Dosage: OPEN-LABEL
     Route: 048
     Dates: start: 20090626
  3. RAD 666 RAD+TAB [Suspect]
     Dosage: OPEN-LABEL
     Route: 048
     Dates: start: 20090716
  4. ZEFFIX [Concomitant]
  5. URSO FALK [Concomitant]
  6. PANTOZOL [Concomitant]

REACTIONS (5)
  - CHOLESTASIS [None]
  - DISEASE PROGRESSION [None]
  - DRUG INEFFECTIVE [None]
  - HEPATIC ENZYME INCREASED [None]
  - LIVER TRANSPLANT REJECTION [None]
